FAERS Safety Report 8362918-7 (Version None)
Quarter: 2012Q2

REPORT INFORMATION
  Report Type: 
  Country: None (occurrence: None)
  Receive Date: 20120516
  Receipt Date: 20111121
  Transmission Date: 20120825
  Serious: No
  Sender: FDA-Public Use
  Company Number: US-MYLANLABS-2011S1024111

PATIENT
  Age: 23 Month
  Sex: Male

DRUGS (1)
  1. ALBUTEROL SULFATE [Suspect]
     Indication: ASTHMA
     Route: 055
     Dates: start: 20111114

REACTIONS (2)
  - NO ADVERSE EVENT [None]
  - INCORRECT ROUTE OF DRUG ADMINISTRATION [None]
